FAERS Safety Report 10203243 (Version 2)
Quarter: 2016Q3

REPORT INFORMATION
  Report Type: Report from Study
  Country: US (occurrence: US)
  Receive Date: 20140529
  Receipt Date: 20160811
  Transmission Date: 20161108
  Serious: Yes (Other)
  Sender: FDA-Public Use
  Company Number: US-ROCHE-1408887

PATIENT
  Age: 9 Year
  Sex: Female
  Weight: 19.55 kg

DRUGS (3)
  1. NUTROPIN AQ [Suspect]
     Active Substance: SOMATROPIN
     Indication: BODY HEIGHT BELOW NORMAL
     Dosage: NIGHTLY
     Route: 058
  2. NUTROPIN AQ [Suspect]
     Active Substance: SOMATROPIN
     Indication: GROWTH RETARDATION
  3. ENSURE [Concomitant]
     Active Substance: AMINO ACIDS\DEXTROSE\ELECTROLYTES NOS\SOYBEAN OIL\VITAMINS
     Dosage: 2-3 TIME S A DAY
     Route: 065

REACTIONS (9)
  - Bone pain [Unknown]
  - Injection site hypertrophy [Unknown]
  - Epistaxis [Unknown]
  - Hypotelorism of orbit [Unknown]
  - Headache [Unknown]
  - Growth retardation [Unknown]
  - Injection site pain [Unknown]
  - Haemangioma [Unknown]
  - Pain in extremity [Unknown]

NARRATIVE: CASE EVENT DATE: 20140305
